FAERS Safety Report 16661461 (Version 2)
Quarter: 2019Q4

REPORT INFORMATION
  Report Type: Spontaneous
  Country: US (occurrence: US)
  Receive Date: 20190802
  Receipt Date: 20191001
  Transmission Date: 20200122
  Serious: No
  Sender: FDA-Public Use
  Company Number: US-BAYER-2019-144218

PATIENT
  Age: 84 Year
  Sex: Male
  Weight: 81.63 kg

DRUGS (2)
  1. CLARITIN [Suspect]
     Active Substance: LORATADINE
     Indication: NASAL INFLAMMATION
     Dosage: 1 DF, QD
     Route: 048
     Dates: start: 20190731, end: 20190731
  2. CLARITIN [Suspect]
     Active Substance: LORATADINE
     Indication: DYSPNOEA

REACTIONS (5)
  - Product expiration date issue [None]
  - Off label use [Unknown]
  - Dyspnoea [None]
  - Drug ineffective for unapproved indication [Unknown]
  - Product lot number issue [None]

NARRATIVE: CASE EVENT DATE: 2019
